FAERS Safety Report 14853749 (Version 2)
Quarter: 2018Q2

REPORT INFORMATION
  Report Type: Spontaneous
  Country: SE (occurrence: SE)
  Receive Date: 20180507
  Receipt Date: 20180530
  Transmission Date: 20180711
  Serious: Yes (Hospitalization)
  Sender: FDA-Public Use
  Company Number: SE-PFIZER INC-2018184158

PATIENT
  Age: 53 Year
  Sex: Female

DRUGS (2)
  1. FOLACIN [Concomitant]
     Active Substance: FOLIC ACID
     Dosage: 20 MG, WEEKLY
     Route: 065
  2. METHOTREXATE SODIUM. [Suspect]
     Active Substance: METHOTREXATE SODIUM
     Indication: RHEUMATOID ARTHRITIS
     Dosage: 25 MG, UNK
     Route: 065
     Dates: start: 20070814, end: 20141121

REACTIONS (2)
  - Folate deficiency [Recovered/Resolved]
  - Haemolysis [Recovered/Resolved]

NARRATIVE: CASE EVENT DATE: 20140121
